FAERS Safety Report 5241989-0 (Version None)
Quarter: 2007Q1

REPORT INFORMATION
  Report Type: 
  Country: None (occurrence: None)
  Receive Date: 20070220
  Receipt Date: 20070208
  Transmission Date: 20070707
  Serious: Yes (Other)
  Sender: FDA-Public Use
  Company Number: BE-PFIZER INC-2007010669

PATIENT
  Age: 64 Year
  Sex: Female
  Weight: 74 kg

DRUGS (3)
  1. CHAMPIX [Suspect]
     Indication: EX-SMOKER
     Route: 048
     Dates: start: 20070105, end: 20070115
  2. ZUMESTON [Concomitant]
     Route: 048
  3. TENORETIC 100 [Concomitant]
     Route: 048

REACTIONS (1)
  - DRUG ERUPTION [None]
